FAERS Safety Report 19135830 (Version 7)
Quarter: 2021Q4

REPORT INFORMATION
  Report Type: Report from Study
  Country: CZ (occurrence: CZ)
  Receive Date: 20210414
  Receipt Date: 20211207
  Transmission Date: 20220303
  Serious: Yes (Death, Life-Threatening, Hospitalization)
  Sender: FDA-Public Use
  Company Number: NVSC2021CZ078230

PATIENT
  Age: 63 Year
  Sex: Female
  Weight: 76 kg

DRUGS (28)
  1. ISCALIMAB [Suspect]
     Active Substance: ISCALIMAB
     Indication: Renal transplant
     Dosage: 13.2 ML, OTHER
     Route: 042
     Dates: start: 20190618, end: 20210216
  2. AMBROXOL [Concomitant]
     Active Substance: AMBROXOL
     Indication: Cough
     Dosage: UNK
     Route: 065
     Dates: start: 20200421
  3. PREDNISONE [Concomitant]
     Active Substance: PREDNISONE
     Indication: Prophylaxis against transplant rejection
     Dosage: UNK
     Route: 065
     Dates: start: 20210322, end: 20210401
  4. TACROLIMUS [Concomitant]
     Active Substance: TACROLIMUS
     Indication: Prophylaxis against transplant rejection
     Dosage: UNK
     Route: 065
     Dates: start: 20210329, end: 20210401
  5. ESOMEPRAZOLUM [Concomitant]
     Indication: Prophylaxis against gastrointestinal ulcer
     Dosage: UNK
     Route: 065
     Dates: start: 20210322, end: 20210409
  6. METOPROLOL [Concomitant]
     Active Substance: METOPROLOL
     Indication: Hypertension
     Dosage: UNK
     Route: 065
     Dates: start: 20190625, end: 20210404
  7. METOPROLOL [Concomitant]
     Active Substance: METOPROLOL
     Dosage: UNK
     Route: 065
     Dates: start: 20210210, end: 20210408
  8. TELMISARTANUM [Concomitant]
     Indication: Hypertension
     Dosage: UNK
     Route: 065
     Dates: start: 20200716, end: 20210409
  9. TELMISARTANUM [Concomitant]
     Dosage: UNK
     Route: 065
     Dates: start: 20210423, end: 20210423
  10. GANCICLOVIRUM [Concomitant]
     Indication: Cytomegalovirus infection
     Dosage: UNK
     Route: 065
     Dates: start: 20210422, end: 20210423
  11. GANCICLOVIRUM [Concomitant]
     Dosage: UNK
     Route: 065
     Dates: start: 20210424, end: 20210428
  12. GANCICLOVIRUM [Concomitant]
     Dosage: UNK
     Route: 065
     Dates: start: 20210501, end: 20210502
  13. ALBUTEROL [Concomitant]
     Active Substance: ALBUTEROL
     Indication: Cough
     Dosage: UNK
     Route: 065
     Dates: start: 20200327, end: 20210402
  14. ALBUTEROL [Concomitant]
     Active Substance: ALBUTEROL
     Dosage: UNK
     Route: 065
     Dates: start: 20200520, end: 20210405
  15. CHOLECALCIFEROL [Concomitant]
     Active Substance: CHOLECALCIFEROL
     Indication: Hyperparathyroidism
     Dosage: UNK
     Route: 065
     Dates: start: 20210212, end: 20210501
  16. LINAGLIPTIN [Concomitant]
     Active Substance: LINAGLIPTIN
     Indication: New onset diabetes after transplantation
     Dosage: UNK
     Route: 065
     Dates: start: 20201201, end: 20210409
  17. VALGANCICLOVIRUM [Concomitant]
     Indication: Cytomegalovirus infection
     Dosage: UNK
     Route: 065
     Dates: start: 20210313, end: 20210314
  18. VALGANCICLOVIRUM [Concomitant]
     Dosage: UNK
     Route: 065
     Dates: start: 20210315, end: 20210331
  19. FLUCONAZOLUM [Concomitant]
     Indication: Fungal infection
     Dosage: UNK
     Route: 065
     Dates: start: 20210315, end: 20210325
  20. CEFUROXIMUM [Concomitant]
     Indication: Leukocyturia
     Dosage: UNK
     Route: 065
     Dates: start: 20210313, end: 20210320
  21. FILGRASTIMUM [Concomitant]
     Indication: Leukopenia
     Dosage: UNK
     Route: 065
     Dates: start: 20210313, end: 20210313
  22. FILGRASTIMUM [Concomitant]
     Indication: Neutropenia
     Dosage: UNK
     Route: 065
     Dates: start: 20210401, end: 20210401
  23. ELECTROLYTES NOS [Concomitant]
     Active Substance: ELECTROLYTES NOS
     Indication: Supplementation therapy
     Dosage: UNK (SOLUTION)
     Route: 065
     Dates: start: 20210401, end: 20210401
  24. INSULINUM HUMANUM [Concomitant]
     Indication: New onset diabetes after transplantation
     Dosage: UNK
     Route: 065
     Dates: start: 20210401, end: 20210401
  25. BUDESONIDE [Concomitant]
     Active Substance: BUDESONIDE
     Indication: Cough
     Dosage: UNK
     Route: 065
     Dates: start: 20200602, end: 20210409
  26. ATORVASTATIN [Concomitant]
     Active Substance: ATORVASTATIN
     Indication: Dyslipidaemia
     Dosage: UNK
     Route: 065
     Dates: start: 20210401, end: 20210405
  27. URAPIDIL [Concomitant]
     Active Substance: URAPIDIL
     Indication: Hypertension
     Dosage: UNK
     Route: 065
     Dates: start: 20190627
  28. SPIRONOLACTONUM [Concomitant]
     Indication: Oedema peripheral
     Dosage: UNK
     Route: 065
     Dates: start: 20200421

REACTIONS (1)
  - Pneumonia [Fatal]

NARRATIVE: CASE EVENT DATE: 20210401
